FAERS Safety Report 7956176-2 (Version None)
Quarter: 2011Q4

REPORT INFORMATION
  Report Type: 
  Country: None (occurrence: None)
  Receive Date: 20111114
  Receipt Date: 20111103
  Transmission Date: 20120403
  Serious: Yes (Other)
  Sender: FDA-Public Use
  Company Number: 2011030259

PATIENT
  Sex: Female
  Weight: 68.0396 kg

DRUGS (7)
  1. FISH OIL [Concomitant]
  2. METHOTREXATE [Concomitant]
  3. PRIVIGEN [Suspect]
     Indication: DERMATOMYOSITIS
     Dosage: (30 G, 30 ML/HR, THEN 150 ML/HR IN 3 HOURS (10% IVIG) INTRAVENOUS (NOT OTHERWISE SPECIFIED))
     Route: 042
     Dates: start: 20110906, end: 20111010
  4. PRIVIGEN [Suspect]
     Indication: OFF LABEL USE
     Dosage: (30 G, 30 ML/HR, THEN 150 ML/HR IN 3 HOURS (10% IVIG) INTRAVENOUS (NOT OTHERWISE SPECIFIED))
     Route: 042
     Dates: start: 20110906, end: 20111010
  5. GLIMEPIRIDE [Concomitant]
  6. LUNESTA [Concomitant]
  7. METFORMIN HCL [Concomitant]

REACTIONS (2)
  - NEUTROPENIA [None]
  - WHITE BLOOD CELL COUNT DECREASED [None]
